FAERS Safety Report 7246523-1 (Version None)
Quarter: 2011Q1

REPORT INFORMATION
  Report Type: 
  Country: None (occurrence: None)
  Receive Date: 20110127
  Receipt Date: 20110119
  Transmission Date: 20110831
  Serious: Yes (Hospitalization)
  Sender: FDA-Public Use
  Company Number: US-US-EMD SERONO, INC.-7037514

PATIENT
  Sex: Female
  Weight: 64 kg

DRUGS (7)
  1. IBUPROFEN [Concomitant]
  2. REBIF [Suspect]
     Indication: MULTIPLE SCLEROSIS
     Route: 058
     Dates: start: 20060927
  3. ESTROGENIC SUBSTANCE [Concomitant]
  4. PROGESTERONE [Concomitant]
  5. ASCORBIC ACID [Concomitant]
  6. VITAMIN E [Concomitant]
  7. TYLENOL-500 [Concomitant]

REACTIONS (7)
  - INJECTION SITE DISCOMFORT [None]
  - MULTIPLE SCLEROSIS RELAPSE [None]
  - PAIN [None]
  - INJECTION SITE ERYTHEMA [None]
  - LUMBAR SPINAL STENOSIS [None]
  - FATIGUE [None]
  - URINARY TRACT INFECTION [None]
